FAERS Safety Report 9665824 (Version 2)
Quarter: 2013Q4

REPORT INFORMATION
  Report Type: Report from Study
  Country: US (occurrence: US)
  Receive Date: 20131104
  Receipt Date: 20131127
  Transmission Date: 20140711
  Serious: Yes (Other)
  Sender: FDA-Public Use
  Company Number: US-ASTELLAS-2013US011363

PATIENT
  Sex: Female

DRUGS (8)
  1. ERLOTINIB TABLET [Suspect]
     Indication: LUNG NEOPLASM MALIGNANT
     Dosage: 100 MG, UID/QD
     Route: 065
  2. XOPENEX [Concomitant]
     Indication: EMPHYSEMA
     Dosage: 2 DF, Q6 HOURS
     Route: 055
  3. SPIRIVA [Concomitant]
     Indication: EMPHYSEMA
     Dosage: 1 DF, UID/QD
     Route: 055
  4. ASMANEX [Concomitant]
     Indication: EMPHYSEMA
     Dosage: 1 DF, BID, MORNING AND NIGHT
     Route: 055
  5. IPRATROPIUM BROMIDE [Concomitant]
     Indication: EMPHYSEMA
     Dosage: 1 DF, SOMETIMES SOONER,Q6 HOURS
     Route: 055
  6. LEVALBUTEROL [Concomitant]
     Indication: EMPHYSEMA
     Dosage: 1 DF, Q6 HOURS, SOMETIMES SOONER
     Route: 055
  7. OMEPRAZOLE [Concomitant]
     Indication: PRODUCT USED FOR UNKNOWN INDICATION
     Dosage: 1 DF, UID/QD, IN THE MORNING.
     Route: 065
  8. VESICARE [Concomitant]
     Indication: PRODUCT USED FOR UNKNOWN INDICATION
     Dosage: 1 DF, UID/QD
     Route: 065

REACTIONS (3)
  - Incorrect dose administered [Unknown]
  - Vision blurred [Not Recovered/Not Resolved]
  - Cataract [Not Recovered/Not Resolved]
